FAERS Safety Report 8570437 (Version 2)
Quarter: 2012Q4

REPORT INFORMATION
  Report Type: Report from Study
  Country: AE (occurrence: AE)
  Receive Date: 20120521
  Receipt Date: 20121122
  Transmission Date: 20130627
  Serious: Yes (Hospitalization)
  Sender: FDA-Public Use
  Company Number: PHHY2012AE005532

PATIENT
  Age: 44 Year
  Sex: Male
  Weight: 66 kg

DRUGS (2)
  1. VALSARTAN, AMLODIPINE [Suspect]
     Dosage: 1 DF (160 mg valsar and 5 mg amlo), QD
     Route: 048
     Dates: start: 20101022, end: 20110305
  2. ANTIHYPERTENSIVES [Concomitant]

REACTIONS (4)
  - Myocardial infarction [Recovered/Resolved]
  - Abdominal pain upper [Recovered/Resolved]
  - Nausea [Recovered/Resolved]
  - Vomiting [Recovered/Resolved]
